FAERS Safety Report 17859024 (Version 1)
Quarter: 2020Q2

REPORT INFORMATION
  Report Type: Spontaneous
  Country: US (occurrence: US)
  Receive Date: 20200603
  Receipt Date: 20200603
  Transmission Date: 20200714
  Serious: Yes (Other)
  Sender: FDA-Public Use
  Company Number: None

PATIENT
  Age: 75 Year
  Sex: Female
  Weight: 84.7 kg

DRUGS (2)
  1. REMDESIVIR. [Suspect]
     Active Substance: REMDESIVIR
     Indication: COVID-19
     Route: 040
     Dates: start: 20200530, end: 20200601
  2. REMDESIVIR. [Suspect]
     Active Substance: REMDESIVIR
     Indication: COVID-19
     Dosage: ?          OTHER FREQUENCY:ONCE;?
     Route: 040
     Dates: start: 20200529, end: 20200529

REACTIONS (6)
  - Cardiac dysfunction [None]
  - Dialysis [None]
  - Blood creatinine increased [None]
  - Anuria [None]
  - International normalised ratio increased [None]
  - Renal impairment [None]

NARRATIVE: CASE EVENT DATE: 20200601
